FAERS Safety Report 9150533 (Version 3)
Quarter: 2013Q2

REPORT INFORMATION
  Report Type: Spontaneous
  Country: RU (occurrence: RU)
  Receive Date: 20130308
  Receipt Date: 20130603
  Transmission Date: 20140414
  Serious: Yes (Other)
  Sender: FDA-Public Use
  Company Number: RU-BRISTOL-MYERS SQUIBB COMPANY-17420852

PATIENT
  Age: 33 Year
  Sex: Male

DRUGS (1)
  1. REYATAZ [Suspect]
     Indication: HIV INFECTION
     Dosage: PER OS
     Dates: start: 20110422, end: 201301

REACTIONS (3)
  - Acquired haemophilia [Unknown]
  - Limb injury [Unknown]
  - Haematoma [Unknown]
